FAERS Safety Report 5682704-6 (Version None)
Quarter: 2008Q1

REPORT INFORMATION
  Report Type: 
  Country: None (occurrence: None)
  Receive Date: 20080326
  Receipt Date: 20080326
  Transmission Date: 20080703
  Serious: Yes (Death, Hospitalization)
  Sender: FDA-Public Use
  Company Number: None

PATIENT
  Sex: Female

DRUGS (10)
  1. REVLIMID [Suspect]
     Indication: MULTIPLE MYELOMA
     Dosage: 25MG DAILY FOR 21/28D PO
     Route: 048
     Dates: start: 20071005, end: 20071115
  2. REVLIMID [Suspect]
  3. DEXAMETHASONE TAB [Concomitant]
  4. ALKERAN [Concomitant]
  5. ANZEMET [Concomitant]
  6. FENTANYL [Concomitant]
  7. FELODIPINE [Concomitant]
  8. PHOSLO [Concomitant]
  9. DOCUSATE [Concomitant]
  10. NORTRIPTYLINE HCL [Concomitant]

REACTIONS (4)
  - BACTERIAL INFECTION [None]
  - HEADACHE [None]
  - SEPSIS [None]
  - SUBDURAL HAEMATOMA [None]
